FAERS Safety Report 7238982-5 (Version None)
Quarter: 2011Q1

REPORT INFORMATION
  Report Type: 
  Country: None (occurrence: None)
  Receive Date: 20110121
  Receipt Date: 20110114
  Transmission Date: 20110831
  Serious: Yes (Other)
  Sender: FDA-Public Use
  Company Number: US-JNJFOC-20110104500

PATIENT
  Sex: Female

DRUGS (2)
  1. LYRICA [Concomitant]
     Route: 065
  2. ULTRAM [Suspect]
     Indication: ILL-DEFINED DISORDER
     Route: 065

REACTIONS (4)
  - DRUG DEPENDENCE [None]
  - THERAPEUTIC RESPONSE DECREASED [None]
  - FIBROMYALGIA [None]
  - MALAISE [None]
